FAERS Safety Report 7418226-1 (Version None)
Quarter: 2011Q2

REPORT INFORMATION
  Report Type: 
  Country: None (occurrence: None)
  Receive Date: 20110415
  Receipt Date: 20110404
  Transmission Date: 20111010
  Serious: Yes (Hospitalization, Other)
  Sender: FDA-Public Use
  Company Number: CA-JNJFOC-20090904244

PATIENT
  Sex: Female
  Weight: 102.06 kg

DRUGS (5)
  1. STELARA [Suspect]
     Route: 058
     Dates: start: 20090827
  2. METFORMIN HCL [Concomitant]
     Indication: DIABETES MELLITUS
     Route: 048
  3. STELARA [Suspect]
     Indication: PSORIASIS
     Route: 058
     Dates: start: 20090827
  4. NORVASC [Concomitant]
     Indication: ILL-DEFINED DISORDER
  5. HYDROCHLOROTHIAZIDE [Concomitant]

REACTIONS (15)
  - BRONCHITIS [None]
  - CASTLEMAN'S DISEASE [None]
  - PANCREATITIS [None]
  - BLOOD PRESSURE INCREASED [None]
  - BLOOD GLUCOSE INCREASED [None]
  - FATIGUE [None]
  - COLLAPSE OF LUNG [None]
  - THYROID NEOPLASM [None]
  - SINUSITIS [None]
  - HEPATOSPLENOMEGALY [None]
  - CHOLECYSTITIS [None]
  - MALAISE [None]
  - PROTEINURIA [None]
  - IMMUNOSUPPRESSION [None]
  - HEADACHE [None]
